FAERS Safety Report 5709483 (Version 6)
Quarter: 2012Q4

REPORT INFORMATION
  Report Type: 
  Country: GB (occurrence: GB)
  Receive Date: 20050106
  Receipt Date: 20121130
  Transmission Date: 20130627
  Serious: Yes (Life-Threatening, Hospitalization)
  Sender: FDA-Public Use
  Company Number: GB-JNJFOC-20050100690

PATIENT
  Age: 7 Year
  Sex: Female

DRUGS (1)
  1. MOTRIN [Suspect]
     Indication: BODY TEMPERATURE INCREASED
     Route: 065
     Dates: start: 19980519, end: 19980519

REACTIONS (1)
  - Hypothermia [Recovered/Resolved]
